FAERS Safety Report 6545881-0 (Version None)
Quarter: 2010Q1

REPORT INFORMATION
  Report Type: 
  Country: None (occurrence: None)
  Receive Date: 20100121
  Receipt Date: 20091130
  Transmission Date: 20100710
  Serious: No
  Sender: FDA-Public Use
  Company Number: US-ALLERGAN-0916526US

PATIENT
  Sex: Female

DRUGS (3)
  1. TAZORAC [Suspect]
     Indication: ACNE
     Dosage: UNK
     Route: 061
  2. CLINDAMYCIN [Concomitant]
  3. SUN BATH PROTECTIVE TANNING LOTION [Concomitant]

REACTIONS (2)
  - PRURITUS [None]
  - RASH [None]
